FAERS Safety Report 7371999 (Version 3)
Quarter: 2017Q3

REPORT INFORMATION
  Report Type: Spontaneous
  Country: US (occurrence: US)
  Receive Date: 20100430
  Receipt Date: 20170915
  Transmission Date: 20171128
  Serious: Yes (Other)
  Sender: FDA-Public Use
  Company Number: US-BAYER-201017199NA

PATIENT
  Age: 45 Year
  Sex: Female
  Weight: 74.09 kg

DRUGS (19)
  1. EPOGEN [Concomitant]
     Active Substance: ERYTHROPOIETIN
  2. MAGNEVIST [Suspect]
     Active Substance: GADOPENTETATE DIMEGLUMINE
     Indication: NUCLEAR MAGNETIC RESONANCE IMAGING ABDOMINAL
  3. OMNISCAN [Suspect]
     Active Substance: GADODIAMIDE
     Indication: NUCLEAR MAGNETIC RESONANCE IMAGING
     Dates: start: 20060427, end: 20060427
  4. LEVOTHROID [Concomitant]
     Active Substance: LEVOTHYROXINE SODIUM
  5. PHOSLO [Concomitant]
     Active Substance: CALCIUM ACETATE
  6. PREDNISONE. [Concomitant]
     Active Substance: PREDNISONE
  7. CELLCEPT [Concomitant]
     Active Substance: MYCOPHENOLATE MOFETIL\MYCOPHENOLATE MOFETIL HYDROCHLORIDE
  8. CALCITROL [Concomitant]
     Active Substance: CALCITRIOL
  9. MAGNEVIST [Suspect]
     Active Substance: GADOPENTETATE DIMEGLUMINE
     Indication: SPLENIC LESION
     Route: 042
     Dates: start: 20010116, end: 20010116
  10. OMNISCAN [Suspect]
     Active Substance: GADODIAMIDE
     Indication: IMAGING PROCEDURE
     Dates: start: 20060610, end: 20060610
  11. OMNISCAN [Suspect]
     Active Substance: GADODIAMIDE
     Indication: IMAGING PROCEDURE
     Dates: start: 20050427, end: 20050427
  12. OMNISCAN [Suspect]
     Active Substance: GADODIAMIDE
     Indication: IMAGING PROCEDURE
     Dates: start: 20060621, end: 20060621
  13. COUMADIN [Concomitant]
     Active Substance: WARFARIN SODIUM
  14. RENAGEL [Concomitant]
     Active Substance: SEVELAMER HYDROCHLORIDE
  15. ARANESP [Concomitant]
     Active Substance: DARBEPOETIN ALFA
  16. OMNISCAN [Suspect]
     Active Substance: GADODIAMIDE
     Indication: ANGIOGRAM
     Dates: start: 20050504, end: 20050504
  17. OMNISCAN [Suspect]
     Active Substance: GADODIAMIDE
     Indication: IMAGING PROCEDURE
     Route: 042
     Dates: start: 20060526, end: 20060526
  18. NEPHROCAPS [Concomitant]
     Active Substance: ASCORBIC ACID\BIOTIN\CYANOCOBALAMIN\FOLIC ACID\NIACIN\PANTOTHENIC ACID\PYRIDOXINE\RIBOFLAVIN\THIAMINE
  19. SODIUM BICARBONATE. [Concomitant]
     Active Substance: SODIUM BICARBONATE

REACTIONS (16)
  - Nephrogenic systemic fibrosis [Not Recovered/Not Resolved]
  - Peripheral swelling [Not Recovered/Not Resolved]
  - Skin hyperpigmentation [Not Recovered/Not Resolved]
  - Gait disturbance [Not Recovered/Not Resolved]
  - Erythema [Not Recovered/Not Resolved]
  - Fatigue [Not Recovered/Not Resolved]
  - Rash macular [Not Recovered/Not Resolved]
  - Lyme disease [None]
  - Rash [Not Recovered/Not Resolved]
  - Pain in extremity [Not Recovered/Not Resolved]
  - Peau d^orange [Not Recovered/Not Resolved]
  - Skin induration [Not Recovered/Not Resolved]
  - Muscular weakness [Not Recovered/Not Resolved]
  - Ligament disorder [Not Recovered/Not Resolved]
  - Sensory disturbance [Not Recovered/Not Resolved]
  - Pain [None]

NARRATIVE: CASE EVENT DATE: 20050707
